FAERS Safety Report 6304543-5 (Version None)
Quarter: 2009Q3

REPORT INFORMATION
  Report Type: 
  Country: None (occurrence: None)
  Receive Date: 20090806
  Receipt Date: 20090730
  Transmission Date: 20100115
  Serious: Yes (Other)
  Sender: FDA-Public Use
  Company Number: CHPA2009US16194

PATIENT
  Age: 57 Year
  Sex: Female
  Weight: 81.6 kg

DRUGS (1)
  1. TRANSDERM SCOP [Suspect]
     Indication: VERTIGO
     Dosage: 1.5 MG, Q72H, TRANSDERMAL
     Route: 062
     Dates: start: 20090401, end: 20090729

REACTIONS (4)
  - DRUG DEPENDENCE [None]
  - MALAISE [None]
  - NAUSEA [None]
  - VOMITING [None]
